FAERS Safety Report 8903249 (Version 1)
Quarter: 2012Q4

REPORT INFORMATION
  Report Type: Report from Study
  Country: DE (occurrence: DE)
  Receive Date: 20121113
  Receipt Date: 20121113
  Transmission Date: 20130627
  Serious: Yes (Life-Threatening, Disabling)
  Sender: FDA-Public Use
  Company Number: DE-ROCHE-1153867

PATIENT
  Age: 63 Year
  Sex: Female
  Weight: 95 kg

DRUGS (6)
  1. PACLITAXEL [Suspect]
     Indication: BREAST CANCER
     Dosage: date of last dose prior to sae 17/Oct/2012
     Route: 042
     Dates: start: 20120724, end: 20121022
  2. MYOCET [Suspect]
     Indication: BREAST CANCER
     Route: 042
     Dates: start: 20120724, end: 20121022
  3. TRASTUZUMAB [Suspect]
     Indication: BREAST CANCER
     Dosage: date of last dose prior to sae 10/Oct/2012
     Route: 042
     Dates: start: 20120724, end: 20121022
  4. LAPATINIB [Suspect]
     Indication: BREAST CANCER
     Dosage: date of last dose prior to sae 21/oct/2012
     Route: 048
     Dates: start: 20120724, end: 20121022
  5. LISINOPRIL [Concomitant]
  6. BISOPROLOL [Concomitant]

REACTIONS (1)
  - Pneumonia [Not Recovered/Not Resolved]
